FAERS Safety Report 15762762 (Version 1)
Quarter: 2018Q4

REPORT INFORMATION
  Report Type: Report from Study
  Country: CA (occurrence: CA)
  Receive Date: 20181226
  Receipt Date: 20181226
  Transmission Date: 20190205
  Serious: Yes (Other)
  Sender: FDA-Public Use
  Company Number: CA-ELI_LILLY_AND_COMPANY-CA201812010079

PATIENT
  Age: 59 Year

DRUGS (4)
  1. PACLITAX NAB [Concomitant]
     Active Substance: PACLITAXEL
     Indication: DUCTAL ADENOCARCINOMA OF PANCREAS
     Dosage: 125 MG/M2, OTHER
     Route: 065
  2. DURVALUMAB. [Concomitant]
     Active Substance: DURVALUMAB
     Indication: DUCTAL ADENOCARCINOMA OF PANCREAS
     Dosage: 1500 MG, OTHER
     Route: 065
  3. GEMCITABINE HYDROCHLORIDE. [Suspect]
     Active Substance: GEMCITABINE HYDROCHLORIDE
     Indication: DUCTAL ADENOCARCINOMA OF PANCREAS
     Dosage: 1000 MG/M2, OTHER
     Route: 065
  4. TREMELIMUMAB. [Concomitant]
     Active Substance: TREMELIMUMAB
     Indication: DUCTAL ADENOCARCINOMA OF PANCREAS
     Dosage: 75 MG, OTHER
     Route: 065

REACTIONS (1)
  - Colitis [Unknown]
